FAERS Safety Report 21698687 (Version 1)
Quarter: 2022Q4

REPORT INFORMATION
  Report Type: Report from Study
  Country: NO (occurrence: NO)
  Receive Date: 20221208
  Receipt Date: 20221208
  Transmission Date: 20230113
  Serious: Yes (Hospitalization)
  Sender: FDA-Public Use
  Company Number: NO-SA-SAC20221207000405

PATIENT
  Sex: Male

DRUGS (13)
  1. ALEMTUZUMAB [Suspect]
     Active Substance: ALEMTUZUMAB
     Dosage: 30 MG, TIW
     Route: 042
     Dates: start: 20221026, end: 20221121
  2. NYCOPLUS FOLSYRE [Concomitant]
     Indication: Malabsorption
     Dosage: 400 UG, QD
     Route: 048
     Dates: start: 2022
  3. NYCOPLUS MAGNESIUM [Concomitant]
     Indication: Hypomagnesaemia
     Dosage: 350 MG, QD
     Route: 048
     Dates: start: 20221117
  4. PANTOPRAZOLE SODIUM [Concomitant]
     Active Substance: PANTOPRAZOLE SODIUM
     Indication: Malabsorption
     Dosage: 20 MG, BID
     Route: 048
     Dates: start: 2020
  5. IMODIUM [Concomitant]
     Active Substance: LOPERAMIDE HYDROCHLORIDE
     Indication: Malabsorption
     Dosage: 2 MG, Q4D, START DATE: WINTER 21/22
     Route: 048
  6. DETREMIN [Concomitant]
     Indication: Malabsorption
     Dosage: 2400 U, QD
     Route: 048
     Dates: start: 20221118
  7. CALCIUM CARBONATE\CHOLECALCIFEROL [Concomitant]
     Active Substance: CALCIUM CARBONATE\CHOLECALCIFEROL
     Indication: Malabsorption
     Dosage: 500MG CA, 400U VIT D
     Route: 048
     Dates: start: 2021
  8. KALIUMKLORID [Concomitant]
     Indication: Malabsorption
     Dosage: 750 MG, BID
     Route: 048
     Dates: start: 2021
  9. BACTRIM [Concomitant]
     Active Substance: SULFAMETHOXAZOLE\TRIMETHOPRIM
     Indication: Infection prophylaxis
     Dosage: 400MG/80MG, QD
     Route: 048
     Dates: start: 20221026
  10. VALACYCLOVIR HYDROCHLORIDE [Concomitant]
     Active Substance: VALACYCLOVIR HYDROCHLORIDE
     Indication: Infection prophylaxis
     Dosage: 500 MG, QD
     Route: 048
     Dates: start: 20221026
  11. CETIRIZINE HYDROCHLORIDE [Concomitant]
     Active Substance: CETIRIZINE HYDROCHLORIDE
     Indication: Premedication
     Dosage: ONE TBL PRIOR TO CAMPATH INFUSION
     Route: 048
     Dates: start: 20221026
  12. CHOLECALCIFEROL [Concomitant]
     Active Substance: CHOLECALCIFEROL
     Indication: Malabsorption
     Dosage: 2000 UNK, QD
     Route: 048
     Dates: start: 2021
  13. ZOPICLONE [Concomitant]
     Active Substance: ZOPICLONE
     Indication: Insomnia
     Dosage: 5 MG, PRN
     Route: 048
     Dates: start: 20221025

REACTIONS (8)
  - COVID-19 [Unknown]
  - Pyrexia [Unknown]
  - Cough [Unknown]
  - Respiratory tract infection [Unknown]
  - Tachycardia [Unknown]
  - Chills [Unknown]
  - Cytomegalovirus viraemia [Unknown]
  - Product use in unapproved indication [Unknown]

NARRATIVE: CASE EVENT DATE: 20221026
